FAERS Safety Report 5518792-7 (Version None)
Quarter: 2007Q4

REPORT INFORMATION
  Report Type: 
  Country: None (occurrence: None)
  Receive Date: 20071113
  Receipt Date: 20071030
  Transmission Date: 20080405
  Serious: Yes (Hospitalization)
  Sender: FDA-Public Use
  Company Number: MEDI-0006136

PATIENT
  Age: 14 Month
  Sex: Male
  Weight: 8.6 kg

DRUGS (11)
  1. SYNAGIS [Suspect]
     Indication: ANTIVIRAL PROPHYLAXIS
     Dates: start: 20070615, end: 20070816
  2. SYNAGIS [Suspect]
     Indication: ANTIVIRAL PROPHYLAXIS
     Dates: start: 20070615
  3. SYNAGIS [Suspect]
     Indication: ANTIVIRAL PROPHYLAXIS
     Dates: start: 20070716
  4. SYNAGIS [Suspect]
     Indication: ANTIVIRAL PROPHYLAXIS
     Dates: start: 20070917
  5. CEFALXEIN (CEFALEXIN) [Concomitant]
  6. FUROSEMIDE [Concomitant]
  7. SPIRONOLACTONE [Concomitant]
  8. DIGOXIN [Concomitant]
  9. CAPTOPRIL [Concomitant]
  10. DOMEPERIDONE (DOMEPERIDONE) [Concomitant]
  11. BUDESONIDE [Concomitant]

REACTIONS (1)
  - INFLUENZA [None]
